FAERS Safety Report 5402784-2 (Version None)
Quarter: 2007Q3

REPORT INFORMATION
  Report Type: 
  Country: None (occurrence: None)
  Receive Date: 20070730
  Receipt Date: 20070730
  Transmission Date: 20080115
  Serious: Yes (Hospitalization)
  Sender: FDA-Public Use
  Company Number: None

PATIENT
  Sex: Male
  Weight: 53.7 kg

DRUGS (2)
  1. FLUOROURACIL [Suspect]
     Dosage: 3475 MG
  2. LEUCOVORIN CALCIUM [Suspect]
     Dosage: 175 MG

REACTIONS (8)
  - ACUTE RESPIRATORY DISTRESS SYNDROME [None]
  - CHEST PAIN [None]
  - FLANK PAIN [None]
  - HEART RATE INCREASED [None]
  - ILEUS [None]
  - LUNG INFILTRATION [None]
  - PANCREATITIS CHRONIC [None]
  - RESPIRATORY RATE INCREASED [None]
